FAERS Safety Report 21252085 (Version 1)
Quarter: 2022Q3

REPORT INFORMATION
  Report Type: Spontaneous
  Country: US (occurrence: US)
  Receive Date: 20220825
  Receipt Date: 20220825
  Transmission Date: 20221027
  Serious: Yes (Hospitalization, Other)
  Sender: FDA-Public Use
  Company Number: US-AMGEN-USASP2022144482

PATIENT
  Age: 71 Year
  Sex: Male

DRUGS (6)
  1. BEVACIZUMAB [Suspect]
     Active Substance: BEVACIZUMAB
     Indication: Metastases to central nervous system
     Route: 065
  2. IPILIMUMAB [Concomitant]
     Active Substance: IPILIMUMAB
  3. CARBOPLATIN [Concomitant]
     Active Substance: CARBOPLATIN
  4. PACLITAXEL [Concomitant]
     Active Substance: PACLITAXEL
  5. NIVOLUMAB [Concomitant]
     Active Substance: NIVOLUMAB
  6. IPILIMUMAB [Concomitant]
     Active Substance: IPILIMUMAB

REACTIONS (3)
  - Hepatocellular injury [Unknown]
  - Hepatitis B reactivation [Unknown]
  - Off label use [Unknown]
